FAERS Safety Report 18350259 (Version 2)
Quarter: 2020Q4

REPORT INFORMATION
  Report Type: Spontaneous
  Country: GB (occurrence: GB)
  Receive Date: 20201006
  Receipt Date: 20201020
  Transmission Date: 20210114
  Serious: Yes (Life-Threatening, Hospitalization)
  Sender: FDA-Public Use
  Company Number: GB-TEVA-2020-GB-1835369

PATIENT
  Age: 47 Year
  Sex: Female

DRUGS (4)
  1. AZATHIOPRINE. [Suspect]
     Active Substance: AZATHIOPRINE
     Indication: IMMUNOSUPPRESSANT DRUG THERAPY
     Route: 065
  2. MYCOPHENOLATE MOFETIL. [Suspect]
     Active Substance: MYCOPHENOLATE MOFETIL
     Indication: IMMUNOSUPPRESSANT DRUG THERAPY
     Route: 065
  3. TACROLIMUS. [Suspect]
     Active Substance: TACROLIMUS
     Indication: IMMUNOSUPPRESSANT DRUG THERAPY
     Route: 065
  4. PREDNISOLONE. [Suspect]
     Active Substance: PREDNISOLONE
     Indication: IMMUNOSUPPRESSANT DRUG THERAPY
     Route: 065

REACTIONS (11)
  - Pneumocystis jirovecii pneumonia [Recovered/Resolved]
  - Bacterial sepsis [Recovered/Resolved]
  - Urinary tract infection [Recovered/Resolved]
  - Oliguria [Recovered/Resolved]
  - Respiratory failure [Recovered/Resolved]
  - Adrenal insufficiency [Recovered/Resolved]
  - Multiple organ dysfunction syndrome [Recovered/Resolved]
  - Diarrhoea [Unknown]
  - Hypotension [Recovered/Resolved]
  - Pneumocystis jirovecii infection [Recovered/Resolved]
  - Acute respiratory distress syndrome [Recovered/Resolved]
